FAERS Safety Report 22541183 (Version 2)
Quarter: 2024Q3

REPORT INFORMATION
  Report Type: Spontaneous
  Country: IT (occurrence: IT)
  Receive Date: 20230609
  Receipt Date: 20240826
  Transmission Date: 20241016
  Serious: Yes (Other)
  Sender: RANBAXY
  Company Number: IT-SUN PHARMACEUTICAL INDUSTRIES LTD-2023RR-393376

PATIENT
  Age: 76 Year
  Sex: Male

DRUGS (2)
  1. SONIDEGIB [Suspect]
     Active Substance: SONIDEGIB
     Indication: Squamous cell carcinoma of skin
     Dosage: STANDARD DOSE
     Route: 065
     Dates: start: 202011
  2. CEMIPLIMAB [Concomitant]
     Active Substance: CEMIPLIMAB
     Indication: Squamous cell carcinoma of skin
     Dosage: USUAL DOSE
     Route: 065

REACTIONS (3)
  - Therapeutic product effect incomplete [Unknown]
  - Myalgia [Unknown]
  - Alopecia [Unknown]
